FAERS Safety Report 6829796-6 (Version None)
Quarter: 2010Q3

REPORT INFORMATION
  Report Type: 
  Country: None (occurrence: None)
  Receive Date: 20100709
  Receipt Date: 20090304
  Transmission Date: 20110219
  Serious: No
  Sender: FDA-Public Use
  Company Number: US-PFIZER INC-2007017273

PATIENT
  Sex: Female
  Weight: 68.04 kg

DRUGS (7)
  1. CHANTIX [Suspect]
     Indication: SMOKING CESSATION THERAPY
     Dosage: 0.5 MG, 1X/DAY
     Dates: start: 20070226
  2. METOPROLOL [Concomitant]
     Indication: HYPERTENSION
  3. VITAMINS [Concomitant]
  4. NEXIUM [Concomitant]
  5. PREMARIN [Concomitant]
     Indication: HYSTERECTOMY
  6. CALCIUM CARBONATE [Concomitant]
  7. POTASSIUM [Concomitant]

REACTIONS (4)
  - EAR PRURITUS [None]
  - ERYTHEMA [None]
  - HOT FLUSH [None]
  - RASH [None]
